FAERS Safety Report 5874427-5 (Version None)
Quarter: 2008Q3

REPORT INFORMATION
  Report Type: 
  Country: None (occurrence: None)
  Receive Date: 20080908
  Receipt Date: 20080828
  Transmission Date: 20090109
  Serious: Yes (Other)
  Sender: FDA-Public Use
  Company Number: US-PFIZER INC-2008060422

PATIENT
  Sex: Female
  Weight: 54.4 kg

DRUGS (17)
  1. CHANTIX [Suspect]
     Indication: SMOKING CESSATION THERAPY
     Dates: start: 20080614, end: 20080622
  2. DEPAKOTE [Concomitant]
  3. DILANTIN [Concomitant]
  4. ANTIDEPRESSANTS [Concomitant]
  5. ALL OTHER THERAPEUTIC PRODUCTS [Concomitant]
  6. PROMETHAZINE [Concomitant]
  7. BUPROPION HCL [Concomitant]
  8. VITAMIN D [Concomitant]
  9. ACIPHEX [Concomitant]
  10. ALL OTHER THERAPEUTIC PRODUCTS [Concomitant]
  11. TRAZODONE HCL [Concomitant]
  12. PLAVIX [Concomitant]
  13. VITAMIN B COMPLEX CAP [Concomitant]
  14. ALL OTHER THERAPEUTIC PRODUCTS [Concomitant]
  15. ESTROVEN [Concomitant]
  16. ALL OTHER THERAPEUTIC PRODUCTS [Concomitant]
  17. OXYCONTIN [Concomitant]

REACTIONS (3)
  - DEPRESSED MOOD [None]
  - SCREAMING [None]
  - SUICIDAL BEHAVIOUR [None]
